FAERS Safety Report 11269214 (Version 1)
Quarter: 2015Q3

REPORT INFORMATION
  Report Type: Spontaneous
  Country: US (occurrence: None)
  Receive Date: 20150710
  Receipt Date: 20150710
  Transmission Date: 20151125
  Serious: Yes (Other)
  Sender: FDA-Public Use
  Company Number: US-2015EGA000110

PATIENT
  Age: 57 Year
  Sex: Male
  Weight: 99.8 kg

DRUGS (3)
  1. SPRIX [Suspect]
     Active Substance: KETOROLAC TROMETHAMINE
     Indication: PAIN
     Dosage: 1 SPRAY IN EACH NOSTRIL, FOR 1-2 DAYS
     Route: 045
  2. SPRIX [Suspect]
     Active Substance: KETOROLAC TROMETHAMINE
     Indication: NEPHROLITHIASIS
     Dosage: 1 SPRAY IN EACH NOSTRIL, FOR 1-2 DAYS
     Route: 045
  3. LORAZEPAM. [Concomitant]
     Active Substance: LORAZEPAM

REACTIONS (3)
  - Drug administration error [None]
  - Nephrolithiasis [None]
  - Nasal discomfort [None]

NARRATIVE: CASE EVENT DATE: 201506
